FAERS Safety Report 5877358-X (Version None)
Quarter: 2008Q3

REPORT INFORMATION
  Report Type: 
  Country: None (occurrence: None)
  Receive Date: 20080908
  Receipt Date: 20080826
  Transmission Date: 20090109
  Serious: Yes (Hospitalization)
  Sender: FDA-Public Use
  Company Number: 94626

PATIENT
  Age: 15 Month
  Sex: Female

DRUGS (5)
  1. ACETAMINOPHEN SUPPOSITORIES/120 MG [Suspect]
     Indication: PYREXIA
     Dosage: 40 UMOL/L
  2. VALPROIC ACID [Concomitant]
  3. TOPIRAMATE [Concomitant]
  4. ETHOSUXIMIDE [Concomitant]
  5. CLONAZEPAM [Concomitant]

REACTIONS (1)
  - LIVER INJURY [None]
